FAERS Safety Report 9752811 (Version 2)
Quarter: 2013Q4

REPORT INFORMATION
  Report Type: Spontaneous
  Country: US (occurrence: US)
  Receive Date: 20131213
  Receipt Date: 20131213
  Transmission Date: 20140711
  Serious: No
  Sender: FDA-Public Use
  Company Number: US-BAXTER-2013BAX048678

PATIENT
  Age: 34 Year
  Sex: Male

DRUGS (6)
  1. DIANEAL LOW CALCIUM [Suspect]
     Indication: PERITONEAL DIALYSIS
     Route: 033
     Dates: start: 20131001
  2. DIANEAL LOW CALCIUM [Suspect]
     Route: 033
     Dates: start: 20131001
  3. DIANEAL LOW CALCIUM [Suspect]
     Indication: PERITONEAL DIALYSIS
     Route: 033
     Dates: start: 20131001
  4. DIANEAL LOW CALCIUM [Suspect]
     Route: 033
     Dates: start: 20131001
  5. DIANEAL LOW CALCIUM (ULTRABAG) [Suspect]
     Indication: PERITONEAL DIALYSIS
     Route: 033
     Dates: start: 20131001
  6. EXTRANEAL [Suspect]
     Indication: PERITONEAL DIALYSIS
     Route: 033
     Dates: start: 20131001, end: 201311

REACTIONS (1)
  - Fluid overload [Recovering/Resolving]
